FAERS Safety Report 19481641 (Version 1)
Quarter: 2021Q3

REPORT INFORMATION
  Report Type: Spontaneous
  Country: US (occurrence: US)
  Receive Date: 20210701
  Receipt Date: 20210701
  Transmission Date: 20211014
  Serious: Yes (Hospitalization, Other)
  Sender: FDA-Public Use
  Company Number: US-ASTRAZENECA-2021A557916

PATIENT
  Sex: Female
  Weight: 140.6 kg

DRUGS (2)
  1. BRILINTA [Suspect]
     Active Substance: TICAGRELOR
     Indication: IMMUNE THROMBOCYTOPENIA
     Dosage: DOSE UNKNOWN
     Route: 048
     Dates: start: 2019, end: 2021
  2. MEDICATIONS [Concomitant]
     Active Substance: UNSPECIFIED INGREDIENT

REACTIONS (6)
  - Renal impairment [Recovering/Resolving]
  - Abdominal discomfort [Unknown]
  - Feeling abnormal [Not Recovered/Not Resolved]
  - Vomiting [Unknown]
  - Renal disorder [Recovering/Resolving]
  - Hodgkin^s disease [Not Recovered/Not Resolved]
